FAERS Safety Report 5078859-7 (Version None)
Quarter: 2006Q3

REPORT INFORMATION
  Report Type: 
  Country: None (occurrence: None)
  Receive Date: 20060809
  Receipt Date: 20060727
  Transmission Date: 20061208
  Serious: Yes (Other)
  Sender: FDA-Public Use
  Company Number: 228084

PATIENT
  Age: 43 Year
  Sex: Female

DRUGS (1)
  1. AVASTIN [Suspect]
     Indication: PSEUDOXANTHOMA ELASTICUM
     Dosage: 1/MONTH, INTRAOCULAR
     Dates: start: 20060201, end: 20060601

REACTIONS (3)
  - CONJUNCTIVAL VASCULAR DISORDER [None]
  - EYE HAEMORRHAGE [None]
  - SCOTOMA [None]
